FAERS Safety Report 10033240 (Version 2)
Quarter: 2014Q1

REPORT INFORMATION
  Report Type: Spontaneous
  Country: US (occurrence: US)
  Receive Date: 20140324
  Receipt Date: 20140324
  Transmission Date: 20141002
  Serious: Yes (Disabling)
  Sender: FDA-Public Use
  Company Number: US-GE HEALTHCARE MEDICAL DIAGNOSTICS-OSCN-PR-0906S-0302

PATIENT
  Age: 64 Year
  Sex: Female

DRUGS (3)
  1. OMNISCAN [Suspect]
     Indication: RENAL ARTERY STENOSIS
     Route: 042
     Dates: start: 20040628, end: 20040628
  2. MAGNEVIST [Suspect]
     Indication: PRODUCT USED FOR UNKNOWN INDICATION
     Route: 042
     Dates: start: 20000513, end: 20000513
  3. MAGNEVIST [Suspect]
     Route: 042
     Dates: start: 20021001, end: 20021001

REACTIONS (1)
  - Nephrogenic systemic fibrosis [Not Recovered/Not Resolved]
